FAERS Safety Report 8574554-8 (Version None)
Quarter: 2012Q3

REPORT INFORMATION
  Report Type: 
  Country: None (occurrence: None)
  Receive Date: 20120806
  Receipt Date: 20120608
  Transmission Date: 20120928
  Serious: Yes (Other)
  Sender: FDA-Public Use
  Company Number: CHPA2012US012599

PATIENT
  Age: 60 Year
  Sex: Female

DRUGS (1)
  1. EXCEDRIN EXTRA STRENGTH TABLETS [Suspect]
     Indication: TEMPOROMANDIBULAR JOINT SYNDROME
     Dosage: 1 DF,  4 - 6 TIMES A DAY
     Route: 048
     Dates: start: 19740101

REACTIONS (6)
  - HEART RATE INCREASED [None]
  - OFF LABEL USE [None]
  - UNDERDOSE [None]
  - DRUG DEPENDENCE [None]
  - INCORRECT DRUG ADMINISTRATION DURATION [None]
  - HEADACHE [None]
